FAERS Safety Report 8318711 (Version 2)
Quarter: 2012Q4

REPORT INFORMATION
  Report Type: 
  Country: US (occurrence: US)
  Receive Date: 20120103
  Receipt Date: 20121204
  Transmission Date: 20130627
  Serious: Yes (Life-Threatening, Hospitalization, Congenital Anomaly, Other)
  Sender: FDA-Public Use
  Company Number: US-PFIZER INC-2011289488

PATIENT
  Age: 4 Year
  Sex: Male
  Weight: .61 kg

DRUGS (3)
  1. ZOLOFT [Suspect]
     Indication: DEPRESSION
     Dosage: 20 mg, 1x/day
     Route: 064
  2. ALDOMET [Concomitant]
     Indication: HYPERTENSION
     Dosage: 500 mg, 2x/day
     Route: 064
  3. PRENATAL VITAMINS [Concomitant]
     Dosage: UNK
     Route: 064

REACTIONS (10)
  - Maternal exposure timing unspecified [Unknown]
  - Congenital anomaly [Unknown]
  - Autism spectrum disorder [Unknown]
  - Neonatal respiratory distress syndrome [Unknown]
  - Bronchopulmonary dysplasia [Unknown]
  - Patent ductus arteriosus [Unknown]
  - Atrial septal defect [Unknown]
  - Strabismus congenital [Unknown]
  - Retinopathy of prematurity [Unknown]
  - Premature baby [Unknown]
